FAERS Safety Report 16058285 (Version 1)
Quarter: 2019Q1

REPORT INFORMATION
  Report Type: Spontaneous
  Country: JP (occurrence: JP)
  Receive Date: 20190311
  Receipt Date: 20190311
  Transmission Date: 20190418
  Serious: Yes (Other)
  Sender: FDA-Public Use
  Company Number: JP-PFIZER INC-2019104271

PATIENT
  Sex: Male

DRUGS (2)
  1. CELECOX [Suspect]
     Active Substance: CELECOXIB
     Indication: BACK PAIN
     Dosage: UNK, UNKNOWN FREQ.
     Route: 048
     Dates: start: 2018
  2. CELECOX [Suspect]
     Active Substance: CELECOXIB
     Indication: TENDON PAIN
     Dosage: UNK, UNKNOWN FREQ.
     Route: 048
     Dates: start: 201803, end: 2018

REACTIONS (3)
  - Off label use [Unknown]
  - Drug dependence [Unknown]
  - Pain [Unknown]

NARRATIVE: CASE EVENT DATE: 2018
